FAERS Safety Report 9901617 (Version 1)
Quarter: 2014Q1

REPORT INFORMATION
  Report Type: Spontaneous
  Country: DE (occurrence: DE)
  Receive Date: 20140217
  Receipt Date: 20140217
  Transmission Date: 20141002
  Serious: Yes (Other)
  Sender: FDA-Public Use
  Company Number: DE-BAYER-2014-023445

PATIENT
  Sex: Female

DRUGS (1)
  1. CIPROBAY [Suspect]

REACTIONS (1)
  - Factor V inhibition [None]
